FAERS Safety Report 12599514 (Version 2)
Quarter: 2016Q3

REPORT INFORMATION
  Report Type: Report from Study
  Country: US (occurrence: US)
  Receive Date: 20160727
  Receipt Date: 20160909
  Transmission Date: 20161109
  Serious: Yes (Other)
  Sender: FDA-Public Use
  Company Number: US-ABBVIE-16K-163-1683730-00

PATIENT
  Age: 74 Year
  Sex: Male

DRUGS (1)
  1. HUMIRA [Suspect]
     Active Substance: ADALIMUMAB
     Indication: PSORIASIS
     Route: 058
     Dates: end: 20160713

REACTIONS (6)
  - Progressive multifocal leukoencephalopathy [Not Recovered/Not Resolved]
  - Dizziness [Not Recovered/Not Resolved]
  - Exposure to communicable disease [Unknown]
  - Mental impairment [Not Recovered/Not Resolved]
  - Human polyomavirus infection [Unknown]
  - Blindness transient [Not Recovered/Not Resolved]

NARRATIVE: CASE EVENT DATE: 201604
